FAERS Safety Report 8137758-4 (Version None)
Quarter: 2012Q1

REPORT INFORMATION
  Report Type: 
  Country: None (occurrence: None)
  Receive Date: 20120213
  Receipt Date: 20120207
  Transmission Date: 20120608
  Serious: Yes (Hospitalization)
  Sender: FDA-Public Use
  Company Number: 9039997-2012-00001

PATIENT
  Age: 59 Year
  Sex: Female

DRUGS (1)
  1. LEUVULAN KERASTICK TOPICAL SOLUTION, 20 [Suspect]
     Indication: ACTINIC KERATOSIS
     Dosage: 20 PERCENT, ONCE, TOPICAL
     Route: 061
     Dates: start: 20120201

REACTIONS (6)
  - ERYTHEMA [None]
  - PAIN [None]
  - SWELLING FACE [None]
  - LIP SWELLING [None]
  - BLISTER [None]
  - CHEMICAL INJURY [None]
